FAERS Safety Report 9494848 (Version 1)
Quarter: 2013Q3

REPORT INFORMATION
  Report Type: Spontaneous
  Country: US (occurrence: US)
  Receive Date: 20130903
  Receipt Date: 20130903
  Transmission Date: 20140515
  Serious: Yes (Hospitalization)
  Sender: FDA-Public Use
  Company Number: US-JNJFOC-20130812394

PATIENT
  Sex: Female

DRUGS (2)
  1. TYLENOL FLU [Suspect]
     Route: 048
  2. TYLENOL FLU [Suspect]
     Indication: PRODUCT USED FOR UNKNOWN INDICATION
     Dosage: 1 CAPLET
     Route: 048

REACTIONS (1)
  - Anaphylactic shock [Recovered/Resolved]
